FAERS Safety Report 8580474-5 (Version None)
Quarter: 2012Q3

REPORT INFORMATION
  Report Type: 
  Country: None (occurrence: None)
  Receive Date: 20120808
  Receipt Date: 20120731
  Transmission Date: 20120928
  Serious: Yes (Life-Threatening, Other)
  Sender: FDA-Public Use
  Company Number: JP-VERTEX PHARMACEUTICALS INC.-AE-2012-006051

PATIENT
  Age: 49 Year
  Sex: Male

DRUGS (8)
  1. REBETOL [Concomitant]
     Route: 048
     Dates: start: 20120309, end: 20120406
  2. NORVASC [Concomitant]
     Route: 048
  3. OLMESARTAN MEDOXOMIL [Concomitant]
     Route: 048
  4. REBETOL [Concomitant]
     Route: 048
     Dates: start: 20120217, end: 20120308
  5. REBETOL [Concomitant]
     Indication: HEPATITIS C
     Route: 048
     Dates: start: 20120203, end: 20120216
  6. REBETOL [Concomitant]
     Route: 048
     Dates: start: 20120407, end: 20120420
  7. TELAVIC [Suspect]
     Indication: HEPATITIS C
     Route: 048
     Dates: start: 20120203, end: 20120420
  8. PEG-INTRON [Concomitant]
     Indication: HEPATITIS C
     Route: 058
     Dates: start: 20120203

REACTIONS (2)
  - HAEMOGLOBIN DECREASED [None]
  - PANCREATITIS ACUTE [None]
